FAERS Safety Report 4719454-6 (Version None)
Quarter: 2005Q3

REPORT INFORMATION
  Report Type: 
  Country: None (occurrence: None)
  Receive Date: 20050719
  Receipt Date: 20050711
  Transmission Date: 20060218
  Serious: Yes (Other)
  Sender: FDA-Public Use
  Company Number: 200510425BNE

PATIENT
  Age: 28 Year
  Sex: Male
  Weight: 65 kg

DRUGS (1)
  1. CIPROFLOXACIN [Suspect]
     Indication: ORCHITIS
     Dosage: 500 MG, TOTAL DAILY,ORAL
     Route: 048
     Dates: start: 20050420, end: 20050614

REACTIONS (3)
  - ACNE [None]
  - HYPOTRICHOSIS [None]
  - MOOD SWINGS [None]
